FAERS Safety Report 23565299 (Version 1)
Quarter: 2024Q1

REPORT INFORMATION
  Report Type: Spontaneous
  Country: CA (occurrence: None)
  Receive Date: 20240226
  Receipt Date: 20240226
  Transmission Date: 20240410
  Serious: Yes (Hospitalization, Other)
  Sender: FDA-Public Use
  Company Number: CA-PFIZER INC-202400042907

PATIENT
  Age: 27 Year
  Sex: Male

DRUGS (3)
  1. METHOTREXATE [Suspect]
     Active Substance: METHOTREXATE
     Indication: Crohn^s disease
     Dates: start: 202306
  2. PREDNISONE [Concomitant]
     Active Substance: PREDNISONE
     Dosage: UNK (2 MONTHS IN JUN-2023)
     Dates: start: 202306
  3. PREDNISONE [Concomitant]
     Active Substance: PREDNISONE
     Dosage: UNK (2 MONTHS IN DEC-2023)
     Dates: start: 202312

REACTIONS (6)
  - Intestinal obstruction [Unknown]
  - Drug ineffective for unapproved indication [Unknown]
  - Product use in unapproved indication [Unknown]
  - Faecal calprotectin abnormal [Unknown]
  - C-reactive protein abnormal [Unknown]
  - Condition aggravated [Unknown]

NARRATIVE: CASE EVENT DATE: 20230101
